FAERS Safety Report 9055037 (Version 2)
Quarter: 2013Q1

REPORT INFORMATION
  Report Type: Report from Study
  Country: US (occurrence: US)
  Receive Date: 20130206
  Receipt Date: 20130214
  Transmission Date: 20140127
  Serious: Yes (Disabling, Other)
  Sender: FDA-Public Use
  Company Number: US-ROCHE-1188155

PATIENT
  Age: 64 None
  Sex: Female

DRUGS (14)
  1. LUCENTIS [Suspect]
     Indication: MACULAR OEDEMA
     Route: 050
     Dates: start: 20120830, end: 20120830
  2. LUCENTIS [Suspect]
     Route: 050
     Dates: start: 20120927, end: 20120927
  3. LUCENTIS [Suspect]
     Route: 050
     Dates: start: 20121101, end: 20121101
  4. RELION/NOVOLIN 70/30 [Concomitant]
     Route: 065
  5. LEVEMIR [Concomitant]
     Route: 065
  6. GLYBURIDE [Concomitant]
     Route: 065
  7. LEVOTHYROXIN [Concomitant]
     Route: 065
  8. SPIRONOLACTON [Concomitant]
     Route: 065
  9. SPIRONOLACTON [Concomitant]
     Route: 065
     Dates: start: 20121213
  10. BUMETANID [Concomitant]
     Route: 065
  11. LISINOPRIL [Concomitant]
     Route: 065
  12. KLOR-CON [Concomitant]
     Route: 065
  13. LEXAPRO [Concomitant]
     Route: 065
  14. LORATAB [Concomitant]
     Dosage: HALF OF 7.5 MG PILL
     Route: 065

REACTIONS (1)
  - Cerebrovascular accident [Not Recovered/Not Resolved]
